FAERS Safety Report 5847365-1 (Version None)
Quarter: 2008Q3

REPORT INFORMATION
  Report Type: 
  Country: None (occurrence: None)
  Receive Date: 20080813
  Receipt Date: 20080801
  Transmission Date: 20090109
  Serious: Yes (Other)
  Sender: FDA-Public Use
  Company Number: GXKR2008GB07223

PATIENT
  Age: 35 Year
  Sex: Female
  Weight: 86 kg

DRUGS (1)
  1. METRONIDAZOLE [Suspect]
     Indication: ALVEOLAR OSTEITIS
     Dosage: 400 MG, TID, ORAL
     Route: 048
     Dates: start: 20080710, end: 20080715

REACTIONS (3)
  - HEADACHE [None]
  - MYODESOPSIA [None]
  - VISUAL IMPAIRMENT [None]
